FAERS Safety Report 21165661 (Version 2)
Quarter: 2022Q3

REPORT INFORMATION
  Report Type: Spontaneous
  Country: CA (occurrence: CA)
  Receive Date: 20220803
  Receipt Date: 20220825
  Transmission Date: 20221027
  Serious: Yes (Hospitalization)
  Sender: FDA-Public Use
  Company Number: None

PATIENT
  Age: 67 Year
  Sex: Male

DRUGS (19)
  1. METHOTREXATE [Suspect]
     Active Substance: METHOTREXATE
     Indication: Pemphigoid
     Dosage: 1 EVERY 1 WEEKS
     Route: 048
  2. ALLOPURINOL [Concomitant]
     Active Substance: ALLOPURINOL
  3. ATORVASTATIN [Concomitant]
     Active Substance: ATORVASTATIN
  4. BETAMETHASONE [Concomitant]
     Active Substance: BETAMETHASONE
  5. CALCIUM ACETATE [Concomitant]
     Active Substance: CALCIUM ACETATE
  6. CLOBETASOL PROPIONATE [Concomitant]
     Active Substance: CLOBETASOL PROPIONATE
  7. DOCUSATE [Concomitant]
     Active Substance: DOCUSATE
  8. FINASTERIDE [Concomitant]
     Active Substance: FINASTERIDE
  9. FOLIC ACID W/VITAMIN B12 [Concomitant]
     Route: 048
  10. GABAPENTIN [Concomitant]
     Active Substance: GABAPENTIN
  11. HYDROXYZINE [Concomitant]
     Active Substance: HYDROXYZINE HYDROCHLORIDE
  12. MUPIROCIN [Concomitant]
     Active Substance: MUPIROCIN
     Dosage: TOPICAL
  13. OMEGA 3 [Concomitant]
     Active Substance: CAPSAICIN
  14. POLYETHYLENE GLYCOL [Concomitant]
     Active Substance: POLYETHYLENE GLYCOL
  15. PREDNISONE [Concomitant]
     Active Substance: PREDNISONE
  16. RABEPRAZOLE [Concomitant]
     Active Substance: RABEPRAZOLE
  17. Replavite [Concomitant]
     Route: 048
  18. SENNOSIDES [Concomitant]
     Active Substance: SENNOSIDES
  19. TRAZODONE [Concomitant]
     Active Substance: TRAZODONE HYDROCHLORIDE

REACTIONS (6)
  - Febrile neutropenia [Unknown]
  - Hypophagia [Unknown]
  - Oral pain [Unknown]
  - Pancytopenia [Unknown]
  - Stomatitis [Unknown]
  - Toxicity to various agents [Unknown]
